FAERS Safety Report 14966676 (Version 1)
Quarter: 2018Q2

REPORT INFORMATION
  Report Type: Spontaneous
  Country: FR (occurrence: FR)
  Receive Date: 20180604
  Receipt Date: 20180604
  Transmission Date: 20180711
  Serious: Yes (Life-Threatening, Hospitalization)
  Sender: FDA-Public Use
  Company Number: FR-TEVA-2018-FR-900470

PATIENT
  Age: 52 Year
  Sex: Female
  Weight: 87 kg

DRUGS (6)
  1. DEPAMIDE 300 MG, COMPRIM? PELLICUL? GASTRO-R?SISTANT [Suspect]
     Active Substance: VALPROMIDE
     Indication: SUICIDE ATTEMPT
     Dosage: GASTRO-RESISTANT COATED TABLET
     Route: 048
     Dates: start: 20180102, end: 20180102
  2. THERALENE [Suspect]
     Active Substance: TRIMEPRAZINE
     Indication: SUICIDE ATTEMPT
     Dosage: DOSE NOT KNOWN
     Route: 048
     Dates: start: 20180102, end: 20180102
  3. BROMAZEPAM [Suspect]
     Active Substance: BROMAZEPAM
     Indication: SUICIDE ATTEMPT
     Route: 048
     Dates: start: 20180102, end: 20180102
  4. PAROXETINE (CHLORHYDRATE DE) ANHYDRE [Suspect]
     Active Substance: PAROXETINE
     Indication: SUICIDE ATTEMPT
     Dosage: DOSE NOT KNOWN
     Route: 048
     Dates: start: 20180102, end: 20180102
  5. LYSANXIA 10 MG, COMPRIM? [Concomitant]
     Active Substance: PRAZEPAM
     Dosage: 4 DOSAGE FORMS DAILY;
     Route: 048
  6. DEPAKOTE 250 MG, COMPRIM? GASTRO-R?SISTANT [Concomitant]
     Dosage: 3 DOSAGE FORMS DAILY;
     Route: 048

REACTIONS (3)
  - Hypovolaemic shock [Recovered/Resolved]
  - Hypothermia [Recovered/Resolved]
  - Hyperlactacidaemia [Recovered/Resolved]

NARRATIVE: CASE EVENT DATE: 20180102
